FAERS Safety Report 7545236-6 (Version None)
Quarter: 2011Q2

REPORT INFORMATION
  Report Type: 
  Country: None (occurrence: None)
  Receive Date: 20110610
  Receipt Date: 20110610
  Transmission Date: 20111010
  Serious: Yes (Hospitalization)
  Sender: FDA-Public Use
  Company Number: None

PATIENT
  Age: 79 Year
  Sex: Female
  Weight: 63.6 kg

DRUGS (1)
  1. CRESTOR [Suspect]
     Indication: BLOOD CHOLESTEROL
     Dosage: 20 MG CRESTOR ASTRAZENECA MFG. 1 EACH NIGHT BY MOUTH
     Route: 048
     Dates: start: 20090101, end: 20110509

REACTIONS (5)
  - CARDIAC DISORDER [None]
  - MYALGIA [None]
  - CYSTITIS [None]
  - RENAL FAILURE [None]
  - FULL BLOOD COUNT ABNORMAL [None]
